FAERS Safety Report 7243724-3 (Version None)
Quarter: 2011Q1

REPORT INFORMATION
  Report Type: 
  Country: None (occurrence: None)
  Receive Date: 20110125
  Receipt Date: 20110118
  Transmission Date: 20110831
  Serious: Yes (Other)
  Sender: FDA-Public Use
  Company Number: US-PFIZER INC-2010107727

PATIENT
  Sex: Female
  Weight: 52.6 kg

DRUGS (3)
  1. PRISTIQ [Suspect]
     Indication: FIBROMYALGIA
     Dosage: 50 MG, 1X/DAY
     Dates: start: 20100821
  2. LYRICA [Suspect]
     Indication: FIBROMYALGIA
     Dosage: UNK
     Dates: start: 20090101
  3. PRISTIQ [Suspect]
     Indication: DEPRESSION

REACTIONS (3)
  - WEIGHT DECREASED [None]
  - URINARY INCONTINENCE [None]
  - OEDEMA PERIPHERAL [None]
